FAERS Safety Report 9015592 (Version 2)
Quarter: 2013Q1

REPORT INFORMATION
  Report Type: Spontaneous
  Country: FR (occurrence: FR)
  Receive Date: 20130116
  Receipt Date: 20130225
  Transmission Date: 20140127
  Serious: Yes (Hospitalization, Other)
  Sender: FDA-Public Use
  Company Number: FR-ELI_LILLY_AND_COMPANY-FR201301002365

PATIENT
  Age: 58 None
  Sex: Male

DRUGS (2)
  1. ZYPADHERA [Suspect]
     Indication: SCHIZOPHRENIA
     Dosage: 300 MG, UNKNOWN
     Route: 030
     Dates: start: 201209
  2. DEPAKOTE [Concomitant]

REACTIONS (16)
  - Somnolence [Recovered/Resolved]
  - Fatigue [Recovered/Resolved]
  - Confusional state [Recovered/Resolved]
  - Speech disorder [Recovered/Resolved]
  - Motor dysfunction [Recovered/Resolved]
  - Fall [Recovered/Resolved]
  - Contusion [Recovered/Resolved]
  - Inappropriate affect [Recovered/Resolved]
  - Weight increased [Not Recovered/Not Resolved]
  - Dystonia [Recovered/Resolved]
  - Syncope [Recovered/Resolved]
  - Muscle spasms [Recovered/Resolved]
  - Parkinsonism [Recovered/Resolved]
  - Blood glucose abnormal [Not Recovered/Not Resolved]
  - Drug administered at inappropriate site [Unknown]
  - Hyperthermia [Recovered/Resolved]
